FAERS Safety Report 16798067 (Version 1)
Quarter: 2019Q3

REPORT INFORMATION
  Report Type: Spontaneous
  Country: US (occurrence: US)
  Receive Date: 20190912
  Receipt Date: 20190912
  Transmission Date: 20191005
  Serious: Yes (Hospitalization, Other)
  Sender: FDA-Public Use
  Company Number: US-ASTELLAS-2019US036139

PATIENT
  Age: 12 Year
  Sex: Male

DRUGS (1)
  1. ASTAGRAF XL [Suspect]
     Active Substance: TACROLIMUS
     Indication: PRODUCT USED FOR UNKNOWN INDICATION
     Dosage: 0.5 MG, ONCE DAILY MORNING
     Route: 065
     Dates: end: 20190830

REACTIONS (4)
  - Immunosuppressant drug level increased [Not Recovered/Not Resolved]
  - Hepatic function abnormal [Unknown]
  - Renal impairment [Unknown]
  - Sepsis [Recovering/Resolving]
